FAERS Safety Report 19289165 (Version 4)
Quarter: 2022Q2

REPORT INFORMATION
  Report Type: Report from Study
  Country: US (occurrence: US)
  Receive Date: 20210522
  Receipt Date: 20220418
  Transmission Date: 20220721
  Serious: No
  Sender: FDA-Public Use
  Company Number: NVSC2021US114398

PATIENT
  Age: 63 Year
  Sex: Male

DRUGS (1)
  1. ENTRESTO [Suspect]
     Active Substance: SACUBITRIL\VALSARTAN
     Indication: Cardiac failure
     Dosage: BID
     Route: 048
     Dates: start: 20210426

REACTIONS (2)
  - Weight decreased [Recovering/Resolving]
  - Ejection fraction decreased [Unknown]

NARRATIVE: CASE EVENT DATE: 20210426
